FAERS Safety Report 7264354-3 (Version None)
Quarter: 2011Q1

REPORT INFORMATION
  Report Type: 
  Country: None (occurrence: None)
  Receive Date: 20110131
  Receipt Date: 20070802
  Transmission Date: 20110831
  Serious: No
  Sender: FDA-Public Use
  Company Number: 2007BI016512

PATIENT
  Age: 61 Year
  Sex: Female

DRUGS (5)
  1. TYSABRI [Suspect]
     Indication: MULTIPLE SCLEROSIS
     Route: 042
     Dates: start: 20050208, end: 20050208
  2. AVONEX [Concomitant]
     Indication: MULTIPLE SCLEROSIS
     Route: 030
     Dates: start: 20000411, end: 20041123
  3. TYSABRI [Suspect]
     Route: 042
     Dates: start: 20050501, end: 20050501
  4. AVONEX [Concomitant]
     Route: 030
  5. TYSABRI [Suspect]
     Route: 042
     Dates: start: 20070703, end: 20070730

REACTIONS (3)
  - NEUTRALISING ANTIBODIES POSITIVE [None]
  - HYPERSENSITIVITY [None]
  - INFUSION RELATED REACTION [None]
